FAERS Safety Report 5196647-8 (Version None)
Quarter: 2006Q4

REPORT INFORMATION
  Report Type: 
  Country: None (occurrence: None)
  Receive Date: 20061227
  Receipt Date: 20061211
  Transmission Date: 20070319
  Serious: Yes (Hospitalization, Other)
  Sender: FDA-Public Use
  Company Number: 2005121128

PATIENT
  Age: 26 Year
  Sex: Female

DRUGS (4)
  1. NEURONTIN [Suspect]
     Indication: BACK PAIN
     Dosage: 900 MG (300 MG, 3 IN 1 D)
     Dates: start: 20010101
  2. NEURONTIN [Suspect]
     Indication: FIBROMYALGIA
     Dosage: 900 MG (300 MG, 3 IN 1 D)
     Dates: start: 20010101
  3. NEURONTIN [Suspect]
     Indication: PAIN IN EXTREMITY
     Dosage: 900 MG (300 MG, 3 IN 1 D)
     Dates: start: 20010101
  4. ALL OTHER THERAPEUTIC PRODUCTS (ALL OTHER THERAPEUTIC PRODUCTS) [Suspect]
     Indication: INTENTIONAL OVERDOSE

REACTIONS (7)
  - DRUG INEFFECTIVE [None]
  - HALLUCINATIONS, MIXED [None]
  - INJURY [None]
  - INTENTIONAL SELF-INJURY [None]
  - LACERATION [None]
  - OVERDOSE [None]
  - SUICIDE ATTEMPT [None]
